FAERS Safety Report 4994618-5 (Version None)
Quarter: 2006Q2

REPORT INFORMATION
  Report Type: 
  Country: None (occurrence: None)
  Receive Date: 20060505
  Receipt Date: 20050718
  Transmission Date: 20061013
  Serious: Yes (Hospitalization, Disabling, Other)
  Sender: FDA-Public Use
  Company Number: US-MERCK-0507USA03035

PATIENT
  Age: 55 Year
  Sex: Male
  Weight: 89 kg

DRUGS (8)
  1. VIOXX [Suspect]
     Indication: ARTHRALGIA
     Route: 048
     Dates: start: 20000101, end: 20040901
  2. VIOXX [Suspect]
     Indication: OSTEOARTHRITIS
     Route: 048
     Dates: start: 20000101, end: 20040901
  3. TYLENOL (CAPLET) [Concomitant]
     Route: 065
  4. ATENOLOL [Concomitant]
     Route: 048
  5. PROCARDIA XL [Concomitant]
     Route: 048
  6. PRILOSEC [Concomitant]
     Route: 048
  7. LIPITOR [Concomitant]
     Route: 048
  8. ASPIRIN [Concomitant]
     Route: 065

REACTIONS (15)
  - ABDOMINAL PAIN [None]
  - ARTHROPATHY [None]
  - CEREBRAL INFARCTION [None]
  - CHEST DISCOMFORT [None]
  - DYSPNOEA EXERTIONAL [None]
  - IIIRD NERVE DISORDER [None]
  - INTRACRANIAL ANEURYSM [None]
  - MUSCLE TWITCHING [None]
  - NERVE INJURY [None]
  - PNEUMONIA [None]
  - PROSTATITIS [None]
  - SEBORRHOEIC KERATOSIS [None]
  - SKIN LACERATION [None]
  - URINE FLOW DECREASED [None]
  - WEIGHT INCREASED [None]
